FAERS Safety Report 11086728 (Version 1)
Quarter: 2015Q2

REPORT INFORMATION
  Report Type: Spontaneous
  Country: US (occurrence: None)
  Receive Date: 20150501
  Receipt Date: 20150501
  Transmission Date: 20150821
  Serious: No
  Sender: FDA-Public Use
  Company Number: None

PATIENT
  Age: 20 Year
  Sex: Male

DRUGS (1)
  1. SOLU-MEDROL [Suspect]
     Active Substance: METHYLPREDNISOLONE SODIUM SUCCINATE
     Indication: HYPERSENSITIVITY
     Route: 030
     Dates: start: 20150313, end: 20150313

REACTIONS (3)
  - Injection site pain [None]
  - Abasia [None]
  - Muscular weakness [None]

NARRATIVE: CASE EVENT DATE: 20150313
